FAERS Safety Report 5624422-6 (Version None)
Quarter: 2008Q1

REPORT INFORMATION
  Report Type: 
  Country: None (occurrence: None)
  Receive Date: 20080213
  Receipt Date: 20080206
  Transmission Date: 20080703
  Serious: Yes (Hospitalization, Other)
  Sender: FDA-Public Use
  Company Number: CA-JNJFOC-20071005177

PATIENT
  Sex: Male
  Weight: 75 kg

DRUGS (15)
  1. REMICADE [Suspect]
     Route: 042
  2. REMICADE [Suspect]
     Indication: CROHN'S DISEASE
     Route: 042
  3. AVAPRO [Concomitant]
     Indication: DRUG USE FOR UNKNOWN INDICATION
  4. DEMEROL [Concomitant]
     Indication: DRUG USE FOR UNKNOWN INDICATION
  5. SERAX [Concomitant]
     Indication: DRUG USE FOR UNKNOWN INDICATION
  6. ATARAX [Concomitant]
     Indication: DRUG USE FOR UNKNOWN INDICATION
  7. LUVOX [Concomitant]
     Indication: DRUG USE FOR UNKNOWN INDICATION
  8. SINGULAIR [Concomitant]
     Indication: DRUG USE FOR UNKNOWN INDICATION
  9. PREVACID [Concomitant]
     Indication: DRUG USE FOR UNKNOWN INDICATION
  10. VENTOLIN [Concomitant]
     Indication: DRUG USE FOR UNKNOWN INDICATION
  11. PURINETHOL [Concomitant]
     Indication: DRUG USE FOR UNKNOWN INDICATION
  12. KEMADRIN [Concomitant]
     Indication: DRUG USE FOR UNKNOWN INDICATION
  13. DALMANE [Concomitant]
     Indication: DRUG USE FOR UNKNOWN INDICATION
  14. ADVAIR DISKUS 100/50 [Concomitant]
     Indication: DRUG USE FOR UNKNOWN INDICATION
  15. BENADRYL [Concomitant]

REACTIONS (2)
  - CORONARY ANGIOPLASTY [None]
  - CORONARY ARTERIAL STENT INSERTION [None]
